FAERS Safety Report 9890613 (Version 1)
Quarter: 2014Q1

REPORT INFORMATION
  Report Type: Spontaneous
  Country: US (occurrence: None)
  Receive Date: 20140210
  Receipt Date: 20140210
  Transmission Date: 20141002
  Serious: Yes (Hospitalization)
  Sender: FDA-Public Use
  Company Number: None

PATIENT
  Age: 61 Year
  Sex: Female
  Weight: 68.2 kg

DRUGS (1)
  1. CELECOXIB [Suspect]
     Indication: ARTHRITIS
     Route: 048
     Dates: start: 20140105, end: 20140115

REACTIONS (1)
  - Unevaluable event [None]
